FAERS Safety Report 9662629 (Version 2)
Quarter: 2013Q4

REPORT INFORMATION
  Report Type: Spontaneous
  Country: US (occurrence: US)
  Receive Date: 20131031
  Receipt Date: 20131031
  Transmission Date: 20140711
  Serious: No
  Sender: FDA-Public Use
  Company Number: US-PURDUE-USA-2010-0048474

PATIENT
  Age: 49 Year
  Sex: Male

DRUGS (5)
  1. OXYCONTIN (NDA 22-272) [Suspect]
     Indication: BACK PAIN
     Dosage: 80 MG, BID
     Dates: start: 20100914
  2. OXYCONTIN (NDA 22-272) [Suspect]
     Indication: INTERVERTEBRAL DISC DEGENERATION
  3. OXYCONTIN (NDA 22-272) [Suspect]
     Indication: SPINAL OSTEOARTHRITIS
  4. OXYCONTIN (NDA 22-272) [Suspect]
     Indication: INTERVERTEBRAL DISC PROTRUSION
  5. OXYCONTIN (NDA 22-272) [Suspect]
     Indication: INTERVERTEBRAL DISC PROTRUSION

REACTIONS (7)
  - Gastrooesophageal reflux disease [Unknown]
  - Therapeutic response delayed [Unknown]
  - Drug effect decreased [Unknown]
  - Constipation [Unknown]
  - Eructation [Unknown]
  - Abdominal discomfort [Recovered/Resolved]
  - Dyspepsia [Recovered/Resolved]
